FAERS Safety Report 5321792-3 (Version None)
Quarter: 2007Q2

REPORT INFORMATION
  Report Type: 
  Country: None (occurrence: None)
  Receive Date: 20070507
  Receipt Date: 20070427
  Transmission Date: 20071010
  Serious: Yes (Other)
  Sender: FDA-Public Use
  Company Number: THYM-11419

PATIENT
  Age: 53 Year
  Sex: Male

DRUGS (1)
  1. THYMOGLOBULIN [Suspect]
     Indication: PANCREAS TRANSPLANT
     Dosage: 100 MG QD IV
     Route: 042
     Dates: start: 20050214, end: 20050214

REACTIONS (2)
  - COMPLICATIONS OF TRANSPLANT SURGERY [None]
  - GRAFT THROMBOSIS [None]
